FAERS Safety Report 7950411-2 (Version None)
Quarter: 2011Q4

REPORT INFORMATION
  Report Type: 
  Country: None (occurrence: None)
  Receive Date: 20111130
  Receipt Date: 20111121
  Transmission Date: 20120403
  Serious: Yes (Other)
  Sender: FDA-Public Use
  Company Number: US-ASTRAZENECA-2011SE70809

PATIENT
  Age: 61 Year
  Sex: Female
  Weight: 52.2 kg

DRUGS (6)
  1. NEXIUM [Suspect]
     Route: 048
  2. CALCIUM [Concomitant]
  3. EVISTA [Concomitant]
     Indication: BONE DISORDER
  4. NEXIUM [Suspect]
     Indication: GASTROOESOPHAGEAL REFLUX DISEASE
     Route: 048
  5. GLUCOSAMINE [Concomitant]
  6. OMEPRAZOLE [Suspect]
     Route: 048

REACTIONS (8)
  - INAPPROPRIATE SCHEDULE OF DRUG ADMINISTRATION [None]
  - LYMPHOMA [None]
  - HERNIA [None]
  - APHAGIA [None]
  - GASTRITIS EROSIVE [None]
  - GASTRIC DISORDER [None]
  - GASTROOESOPHAGEAL REFLUX DISEASE [None]
  - DRUG DOSE OMISSION [None]
